FAERS Safety Report 7047179-3 (Version None)
Quarter: 2010Q4

REPORT INFORMATION
  Report Type: 
  Country: None (occurrence: None)
  Receive Date: 20101014
  Receipt Date: 20101014
  Transmission Date: 20110411
  Serious: Yes (Hospitalization)
  Sender: FDA-Public Use
  Company Number: None

PATIENT
  Sex: Male
  Weight: 98.4 kg

DRUGS (7)
  1. RITUXIMAB (MOAB C2B8 ANTI CD20, CHIMERIC) [Suspect]
     Dosage: 870 MG
  2. ASPIRIN [Interacting]
  3. ATENOLOL [Concomitant]
  4. ISOSORBIDE 60MG [Concomitant]
  5. METFORMIN HCL [Concomitant]
  6. PLAVIX [Concomitant]
  7. SIMVASTATIN [Concomitant]

REACTIONS (7)
  - CELLULITIS [None]
  - EAR DISORDER [None]
  - ERYTHEMA [None]
  - FEBRILE NEUTROPENIA [None]
  - PANCYTOPENIA [None]
  - SEPSIS [None]
  - STREPTOCOCCUS TEST POSITIVE [None]
